FAERS Safety Report 18099192 (Version 2)
Quarter: 2020Q4

REPORT INFORMATION
  Report Type: Spontaneous
  Country: US (occurrence: US)
  Receive Date: 20200731
  Receipt Date: 20201023
  Transmission Date: 20210113
  Serious: Yes (Death, Hospitalization, Other)
  Sender: FDA-Public Use
  Company Number: US-ASTRAZENECA-2019SE10051

PATIENT
  Age: 65 Year
  Sex: Female
  Weight: 72.6 kg

DRUGS (44)
  1. PRILOSEC [Suspect]
     Active Substance: OMEPRAZOLE MAGNESIUM
     Indication: GASTROOESOPHAGEAL REFLUX DISEASE
     Dosage: GENERIC40.0MG UNKNOWN
     Route: 048
     Dates: start: 20120210
  2. PREVACID [Suspect]
     Active Substance: LANSOPRAZOLE
     Indication: GASTROOESOPHAGEAL REFLUX DISEASE
     Route: 048
     Dates: start: 20101206
  3. TRAMADOL. [Concomitant]
     Active Substance: TRAMADOL
     Indication: PAIN
     Dates: start: 2011, end: 2017
  4. HYDROCHLOROTHIAZIDE. [Concomitant]
     Active Substance: HYDROCHLOROTHIAZIDE
     Indication: BLOOD PRESSURE ABNORMAL
     Dates: start: 2011, end: 2014
  5. TIZANIDINE. [Concomitant]
     Active Substance: TIZANIDINE
  6. AMLODIPINE [Concomitant]
     Active Substance: AMLODIPINE BESYLATE
  7. NASONEX [Concomitant]
     Active Substance: MOMETASONE FUROATE
  8. POTASSIUM CHLORIDE. [Concomitant]
     Active Substance: POTASSIUM CHLORIDE
  9. SPIRONOLACTONE. [Concomitant]
     Active Substance: SPIRONOLACTONE
     Indication: BLOOD PRESSURE ABNORMAL
     Dates: start: 2009, end: 2018
  10. BUMETANIDE. [Concomitant]
     Active Substance: BUMETANIDE
     Indication: BLOOD PRESSURE ABNORMAL
     Dates: start: 2016, end: 2018
  11. DILTIAZEM. [Concomitant]
     Active Substance: DILTIAZEM
  12. IMDUR [Concomitant]
     Active Substance: ISOSORBIDE MONONITRATE
  13. SODIUM BICARBONATE. [Concomitant]
     Active Substance: SODIUM BICARBONATE
  14. TRAMADOL HCL [Concomitant]
     Active Substance: TRAMADOL HYDROCHLORIDE
  15. PREVACID [Suspect]
     Active Substance: LANSOPRAZOLE
     Indication: GASTROOESOPHAGEAL REFLUX DISEASE
     Route: 065
     Dates: start: 2009, end: 2013
  16. B12 INJECTION [Concomitant]
     Indication: ANAEMIA
     Dates: start: 2014, end: 2019
  17. TIOTROPIUM [Concomitant]
     Active Substance: TIOTROPIUM
  18. CIPRODEX [Concomitant]
     Active Substance: CIPROFLOXACIN HYDROCHLORIDE\DEXAMETHASONE
  19. PREVACID [Suspect]
     Active Substance: LANSOPRAZOLE
     Indication: GASTROOESOPHAGEAL REFLUX DISEASE
     Route: 048
     Dates: start: 20090321
  20. PREVACID [Suspect]
     Active Substance: LANSOPRAZOLE
     Indication: GASTROOESOPHAGEAL REFLUX DISEASE
     Route: 048
     Dates: start: 20100416
  21. FUROSEMIDE. [Concomitant]
     Active Substance: FUROSEMIDE
     Indication: SWELLING
     Dates: start: 2009, end: 2011
  22. LOSARTAN. [Concomitant]
     Active Substance: LOSARTAN
     Indication: BLOOD PRESSURE ABNORMAL
     Dates: start: 2011, end: 2018
  23. BUMETANIDE. [Concomitant]
     Active Substance: BUMETANIDE
     Indication: SWELLING
     Dates: start: 2016, end: 2018
  24. WARFARIN [Concomitant]
     Active Substance: WARFARIN
  25. ATENOLOL. [Concomitant]
     Active Substance: ATENOLOL
  26. GLIPIZIDE. [Concomitant]
     Active Substance: GLIPIZIDE
  27. PRILOSEC [Suspect]
     Active Substance: OMEPRAZOLE MAGNESIUM
     Indication: GASTROOESOPHAGEAL REFLUX DISEASE
     Dosage: GENERIC
     Route: 065
     Dates: start: 2012, end: 2017
  28. TRIAMTERENE. [Concomitant]
     Active Substance: TRIAMTERENE
     Indication: BLOOD PRESSURE ABNORMAL
     Dates: start: 2009, end: 2011
  29. POLYMYXIN [Concomitant]
     Active Substance: POLYMYXIN
     Indication: INFECTION
     Dates: start: 2009
  30. LEVOFLOXACIN. [Concomitant]
     Active Substance: LEVOFLOXACIN
     Indication: INFECTION
     Dates: start: 2013
  31. BUTALBITAL [Concomitant]
     Active Substance: BUTALBITAL
  32. WARFARIN SODIUM. [Concomitant]
     Active Substance: WARFARIN SODIUM
  33. TIZANIDINE HCL [Concomitant]
     Active Substance: TIZANIDINE HYDROCHLORIDE
  34. BUPROPION HCL [Concomitant]
     Active Substance: BUPROPION HYDROCHLORIDE
  35. AMLODIPINE BESYLATE. [Concomitant]
     Active Substance: AMLODIPINE BESYLATE
  36. NITROGLYCERIN. [Concomitant]
     Active Substance: NITROGLYCERIN
  37. PREVACID [Suspect]
     Active Substance: LANSOPRAZOLE
     Indication: GASTROOESOPHAGEAL REFLUX DISEASE
     Dosage: GENERIC
     Route: 065
     Dates: start: 2011, end: 2012
  38. MOMETASONE [Concomitant]
     Active Substance: MOMETASONE
  39. POLYSACCHARIDE IRON [Concomitant]
  40. VITAMIN D2 [Concomitant]
     Active Substance: ERGOCALCIFEROL
  41. SPIRONOLACTONE. [Concomitant]
     Active Substance: SPIRONOLACTONE
     Indication: SWELLING
     Dates: start: 2009, end: 2018
  42. VARICELLA-ZOSTER VACCINE NOS [Concomitant]
     Active Substance: VARICELLA-ZOSTER VACCINE
  43. VOLTAREN [Concomitant]
     Active Substance: DICLOFENAC SODIUM
  44. CLARITIN [Concomitant]
     Active Substance: LORATADINE

REACTIONS (4)
  - Chronic kidney disease [Not Recovered/Not Resolved]
  - Pneumonia [Fatal]
  - Septic shock [Fatal]
  - Cardiac failure congestive [Fatal]

NARRATIVE: CASE EVENT DATE: 2014
